FAERS Safety Report 15164243 (Version 1)
Quarter: 2018Q3

REPORT INFORMATION
  Report Type: Spontaneous
  Country: US (occurrence: US)
  Receive Date: 20180719
  Receipt Date: 20180719
  Transmission Date: 20181010
  Serious: No
  Sender: FDA-Public Use
  Company Number: US-PFIZER INC-2018289237

PATIENT
  Age: 77 Year
  Sex: Male
  Weight: 106.59 kg

DRUGS (1)
  1. LYRICA [Suspect]
     Active Substance: PREGABALIN
     Indication: NEUROPATHY PERIPHERAL
     Dosage: 200MG ONCE IN THE MORNING AND 300 MG ONCE AT NIGHT, 2X/DAY

REACTIONS (3)
  - Balance disorder [Unknown]
  - Product use issue [Unknown]
  - Vertigo [Recovering/Resolving]

NARRATIVE: CASE EVENT DATE: 20180610
